FAERS Safety Report 8174484-X (Version None)
Quarter: 2012Q1

REPORT INFORMATION
  Report Type: 
  Country: None (occurrence: None)
  Receive Date: 20120229
  Receipt Date: 20120206
  Transmission Date: 20120608
  Serious: Yes (Other)
  Sender: FDA-Public Use
  Company Number: US-ROCHE-714319

PATIENT
  Sex: Male
  Weight: 61.2 kg

DRUGS (14)
  1. ACTEMRA [Suspect]
     Dosage: DOSE: 8 MG/KG
     Route: 042
  2. ACTEMRA [Suspect]
     Dosage: DOSE: 8 MG/KG
     Route: 042
  3. DICLOFENAC SODIUM [Concomitant]
     Indication: ARTHRITIS
     Route: 048
  4. ACTEMRA [Suspect]
     Indication: RHEUMATOID ARTHRITIS
     Dosage: FORM: INFUSION.LAST DOSE PRIOR TO SAE:30 JUNE 2010
     Route: 042
  5. METHOTREXATE [Concomitant]
     Dosage: STRENGTH: 25 MG/ML. FORM: VIAL INJ.
  6. METHOTREXATE [Concomitant]
     Dosage: ROUTE: ORAL
  7. ACTEMRA [Suspect]
     Dosage: DOSE: 8 MG/KG
     Route: 042
  8. FOLIC ACID [Concomitant]
     Route: 048
  9. ACTEMRA [Suspect]
     Dosage: DOSE: 8 MG/KG
     Route: 042
  10. METHOTREXATE [Concomitant]
  11. FOLIC ACID [Concomitant]
     Route: 048
  12. ACTEMRA [Suspect]
     Dosage: FORM:INFUSION.PATIENT WAS ENROLLED IN STUDY WA18063
     Route: 042
  13. DICLOFENAC SODIUM [Concomitant]
     Dosage: AS NEEDED. TAKES RARELY.
     Route: 048
  14. PANCREATIN TRIPLE STRENGTH CAP [Concomitant]
     Dosage: DRUG: PANCREATIN ENZYME OTC

REACTIONS (1)
  - LUNG NEOPLASM [None]
